FAERS Safety Report 14299982 (Version 2)
Quarter: 2018Q1

REPORT INFORMATION
  Report Type: Spontaneous
  Country: JP (occurrence: JP)
  Receive Date: 20171219
  Receipt Date: 20180216
  Transmission Date: 20180509
  Serious: Yes (Other)
  Sender: FDA-Public Use
  Company Number: JP-BAXTER-2017BAX042966

PATIENT
  Age: 34 Year
  Sex: Male

DRUGS (12)
  1. HOLOXAN [Suspect]
     Active Substance: IFOSFAMIDE
     Indication: MYXOID LIPOSARCOMA
     Dosage: FIRST CYCLE OF 4 WEEK, ADMINISTERED FROM DAY 1 TO 5
     Route: 041
     Dates: start: 20170925, end: 20170929
  2. GRANISETRON HYDROCHLORIDE. [Concomitant]
     Active Substance: GRANISETRON HYDROCHLORIDE
     Indication: PRODUCT USED FOR UNKNOWN INDICATION
     Route: 065
  3. ADRIACIN [Suspect]
     Active Substance: DOXORUBICIN HYDROCHLORIDE
     Indication: MYXOID LIPOSARCOMA
     Dosage: FIRST CYCLE OF 4 WEEK, ADMINISTERED FROM DAY 1 TO 3
     Route: 042
     Dates: start: 20170925, end: 20170927
  4. DEXART [Concomitant]
     Active Substance: DEXAMETHASONE SODIUM PHOSPHATE
     Indication: PRODUCT USED FOR UNKNOWN INDICATION
     Route: 065
  5. CALONAL [Concomitant]
     Active Substance: ACETAMINOPHEN
     Indication: PRODUCT USED FOR UNKNOWN INDICATION
     Route: 065
  6. MEYLON [Concomitant]
     Active Substance: SODIUM BICARBONATE
     Indication: PRODUCT USED FOR UNKNOWN INDICATION
     Route: 065
  7. FERROUS CITRATE NA [Concomitant]
     Active Substance: SODIUM FERROUS CITRATE
     Indication: PRODUCT USED FOR UNKNOWN INDICATION
     Route: 048
  8. UROMITEXAN 400 MG [Suspect]
     Active Substance: MESNA
     Indication: MYXOID LIPOSARCOMA
     Dosage: FIRST CYCLE OF 4 WEEK, ADMINISTERED FROM DAY 1 TO 5
     Route: 042
     Dates: start: 20170925, end: 20170929
  9. HOLOXAN [Suspect]
     Active Substance: IFOSFAMIDE
     Dosage: SECOND CYCLE
     Route: 041
     Dates: start: 20171023, end: 20171024
  10. ADRIACIN [Suspect]
     Active Substance: DOXORUBICIN HYDROCHLORIDE
     Dosage: SECOND CYCLE
     Route: 042
     Dates: start: 20171023, end: 20171024
  11. POLAPREZINC OD [Concomitant]
     Indication: PRODUCT USED FOR UNKNOWN INDICATION
     Route: 048
  12. UROMITEXAN 400 MG [Suspect]
     Active Substance: MESNA
     Dosage: SECOND CYCLE
     Route: 042
     Dates: start: 20171023, end: 20171025

REACTIONS (3)
  - Febrile neutropenia [Recovering/Resolving]
  - White blood cell count decreased [Unknown]
  - Cystitis haemorrhagic [Recovered/Resolved with Sequelae]

NARRATIVE: CASE EVENT DATE: 201710
